FAERS Safety Report 11599976 (Version 1)
Quarter: 2015Q3

REPORT INFORMATION
  Report Type: Spontaneous
  Country: US (occurrence: US)
  Receive Date: 20150916
  Receipt Date: 20150916
  Transmission Date: 20151125
  Serious: Yes (Hospitalization, Other)
  Sender: FDA-Public Use
  Company Number: US-ELI_LILLY_AND_COMPANY-US201407009775

PATIENT
  Age: 43 Year
  Sex: Female
  Weight: 64.5 kg

DRUGS (1)
  1. HUMALOG [Suspect]
     Active Substance: INSULIN LISPRO
     Indication: PRODUCT USED FOR UNKNOWN INDICATION
     Dosage: UNK
     Route: 058

REACTIONS (5)
  - Blood glucose decreased [Unknown]
  - Confusional state [Unknown]
  - Loss of consciousness [Unknown]
  - Blood glucose increased [Unknown]
  - Road traffic accident [Unknown]

NARRATIVE: CASE EVENT DATE: 20140723
